FAERS Safety Report 7802798-9 (Version None)
Quarter: 2011Q4

REPORT INFORMATION
  Report Type: 
  Country: None (occurrence: None)
  Receive Date: 20111007
  Receipt Date: 20111005
  Transmission Date: 20120403
  Serious: Yes (Death, Hospitalization)
  Sender: FDA-Public Use
  Company Number: DK-PFIZER INC-2011238314

PATIENT
  Age: 35 Year
  Sex: Female

DRUGS (2)
  1. NORGESTIMATE AND ETHINYL ESTRADIOL [Concomitant]
     Indication: CONTRACEPTION
     Dates: start: 19981028
  2. VARENICLINE TARTRATE [Suspect]
     Indication: SMOKING CESSATION THERAPY
     Dosage: NOT KNOWN HOW MANY TABLETS THE PATIENT HAD TAKEN
     Route: 048
     Dates: start: 20110607, end: 20110701

REACTIONS (3)
  - CARDIAC ARREST [None]
  - ACUTE MYOCARDIAL INFARCTION [None]
  - CHEST PAIN [None]
